FAERS Safety Report 10232358 (Version 1)
Quarter: 2014Q2

REPORT INFORMATION
  Report Type: Spontaneous
  Country: US (occurrence: None)
  Receive Date: 20140610
  Receipt Date: 20140610
  Transmission Date: 20141212
  Serious: Yes (Other)
  Sender: FDA-Public Use
  Company Number: None

PATIENT
  Age: 76 Year
  Sex: Female

DRUGS (3)
  1. RECLAST [Suspect]
     Indication: OSTEOPOROSIS
     Dosage: INFUSTION?
     Dates: start: 20140512
  2. MUSINEX DM [Concomitant]
  3. HYDROCHLOROTHIAZIDE [Concomitant]

REACTIONS (10)
  - Hypokinesia [None]
  - Painful respiration [None]
  - Muscle spasms [None]
  - Arthralgia [None]
  - Joint swelling [None]
  - Pyrexia [None]
  - Malaise [None]
  - Pain [None]
  - Pain in extremity [None]
  - Arthralgia [None]
